FAERS Safety Report 5165388-5 (Version None)
Quarter: 2006Q4

REPORT INFORMATION
  Report Type: 
  Country: None (occurrence: None)
  Receive Date: 20061206
  Receipt Date: 20061128
  Transmission Date: 20070319
  Serious: Yes (Death)
  Sender: FDA-Public Use
  Company Number: AT-AVENTIS-200622182GDDC

PATIENT
  Age: 50 Year
  Sex: Male

DRUGS (5)
  1. TAXOTERE [Suspect]
     Indication: NON-SMALL CELL LUNG CANCER
     Route: 042
     Dates: start: 20060413, end: 20060413
  2. PASPERTIN [Concomitant]
     Indication: PROPHYLAXIS OF NAUSEA AND VOMITING
     Route: 048
     Dates: start: 20060413, end: 20060420
  3. RESPICUR [Concomitant]
     Indication: DYSPNOEA
     Route: 048
     Dates: start: 20060413, end: 20060420
  4. DICLOBENE [Concomitant]
     Indication: PAIN
     Route: 048
     Dates: start: 20060413, end: 20060420
  5. METAMIZOLE [Concomitant]
     Indication: PAIN
     Route: 048
     Dates: start: 20060401, end: 20060420

REACTIONS (1)
  - HAEMOPTYSIS [None]
